FAERS Safety Report 25611425 (Version 1)
Quarter: 2025Q3

REPORT INFORMATION
  Report Type: Report from Study
  Country: TH (occurrence: TH)
  Receive Date: 20250728
  Receipt Date: 20250728
  Transmission Date: 20251021
  Serious: Yes (Other)
  Sender: ALEXION PHARMACEUTICALS
  Company Number: TH-AstraZeneca-CH-00918993A

PATIENT
  Age: 56 Year
  Sex: Female

DRUGS (1)
  1. GEFITINIB [Suspect]
     Active Substance: GEFITINIB
     Indication: Non-small cell lung cancer

REACTIONS (4)
  - Thrombosis [Unknown]
  - Cough [Recovered/Resolved]
  - Pulmonary mass [Unknown]
  - Diaphragmatic disorder [Unknown]

NARRATIVE: CASE EVENT DATE: 20240101
